FAERS Safety Report 17035488 (Version 1)
Quarter: 2019Q4

REPORT INFORMATION
  Report Type: Spontaneous
  Country: AT (occurrence: AT)
  Receive Date: 20191115
  Receipt Date: 20191115
  Transmission Date: 20200122
  Serious: Yes (Other)
  Sender: FDA-Public Use
  Company Number: PHHY2015AT098666

PATIENT
  Age: 70 Year
  Sex: Male

DRUGS (1)
  1. GILENYA [Suspect]
     Active Substance: FINGOLIMOD HYDROCHLORIDE
     Indication: RELAPSING-REMITTING MULTIPLE SCLEROSIS
     Dosage: 0.5 MG
     Route: 065
     Dates: start: 201205

REACTIONS (11)
  - Central nervous system lesion [Unknown]
  - Rebound effect [Unknown]
  - Bladder dysfunction [Unknown]
  - Multiple sclerosis relapse [Unknown]
  - Mycobacterium tuberculosis complex test positive [Unknown]
  - Dyspnoea [Unknown]
  - Bradyarrhythmia [Not Recovered/Not Resolved]
  - JC polyomavirus test positive [Unknown]
  - General physical health deterioration [Unknown]
  - Atrioventricular block second degree [Not Recovered/Not Resolved]
  - Atrioventricular block complete [Not Recovered/Not Resolved]

NARRATIVE: CASE EVENT DATE: 201309
